FAERS Safety Report 25914360 (Version 5)
Quarter: 2025Q4

REPORT INFORMATION
  Report Type: Spontaneous
  Country: US (occurrence: US)
  Receive Date: 20251013
  Receipt Date: 20251029
  Transmission Date: 20260117
  Serious: No
  Sender: ROCHE
  Company Number: US-ROCHE-10000406512

PATIENT
  Age: 19 Year
  Sex: Female
  Weight: 47.63 kg

DRUGS (3)
  1. XOLAIR [Suspect]
     Active Substance: OMALIZUMAB
     Indication: Food allergy
     Dosage: -OCT-2025?ONE 300MG, ONE 150MG, ONE 75MG PREFILLED SYRINGES EVERY 2 WEEKS
     Route: 058
     Dates: start: 20250124
  2. XOLAIR [Suspect]
     Active Substance: OMALIZUMAB
  3. LEXAPRO [Concomitant]
     Active Substance: ESCITALOPRAM OXALATE

REACTIONS (5)
  - Needle issue [Unknown]
  - Syringe issue [Unknown]
  - Underdose [Unknown]
  - No adverse event [Unknown]
  - Product dose omission issue [Unknown]

NARRATIVE: CASE EVENT DATE: 20251006
